FAERS Safety Report 19002926 (Version 1)
Quarter: 2021Q1

REPORT INFORMATION
  Report Type: Spontaneous
  Country: FR (occurrence: FR)
  Receive Date: 20210312
  Receipt Date: 20210312
  Transmission Date: 20210420
  Serious: Yes (Other)
  Sender: FDA-Public Use
  Company Number: FR-ACCORD-219272

PATIENT
  Age: 42 Year
  Sex: Female
  Weight: 57 kg

DRUGS (2)
  1. PACLITAXEL/PACLITAXEL LIPOSOME [Suspect]
     Active Substance: PACLITAXEL
     Indication: CERVIX NEOPLASM
     Route: 042
     Dates: start: 20201204, end: 20201204
  2. CARBOPLATINE ACCORD [Suspect]
     Active Substance: CARBOPLATIN
     Indication: CERVIX NEOPLASM
     Route: 042
     Dates: start: 20201204, end: 20201204

REACTIONS (1)
  - Anaphylactic reaction [Recovered/Resolved]

NARRATIVE: CASE EVENT DATE: 20201204
